FAERS Safety Report 24467802 (Version 1)
Quarter: 2024Q4

REPORT INFORMATION
  Report Type: Report from Study
  Country: US (occurrence: US)
  Receive Date: 20241018
  Receipt Date: 20241018
  Transmission Date: 20250115
  Serious: No
  Sender: LUNDBECK
  Company Number: US-LUNDBECK-DKLU4005157

PATIENT

DRUGS (1)
  1. VYEPTI [Suspect]
     Active Substance: EPTINEZUMAB-JJMR
     Indication: Migraine
     Dosage: FOR BETWEEN 2-6 MONTHS
     Route: 041

REACTIONS (3)
  - Fatigue [Unknown]
  - Dizziness [Unknown]
  - Drug effect less than expected [Unknown]
